FAERS Safety Report 19015001 (Version 2)
Quarter: 2021Q1

REPORT INFORMATION
  Report Type: Other
  Country: US (occurrence: US)
  Receive Date: 20210316
  Receipt Date: 20210319
  Transmission Date: 20210420
  Serious: Yes (Life-Threatening, Hospitalization, Other)
  Sender: FDA-Public Use
  Company Number: US-NOVA LABORATORIES LIMITED-2108050

PATIENT
  Sex: Female

DRUGS (6)
  1. PURIXAN [Suspect]
     Active Substance: MERCAPTOPURINE
     Indication: ACUTE LYMPHOCYTIC LEUKAEMIA REFRACTORY
  2. BLINATUMOMAB [Concomitant]
     Active Substance: BLINATUMOMAB
  3. METHOTREXATE. [Suspect]
     Active Substance: METHOTREXATE
  4. CYCLOPHOSPHAMIDE. [Suspect]
     Active Substance: CYCLOPHOSPHAMIDE
  5. TISAGENLECLEUCEL?T [Concomitant]
     Active Substance: TISAGENLECLEUCEL
  6. FLUDARABINE [Suspect]
     Active Substance: FLUDARABINE PHOSPHATE

REACTIONS (5)
  - Neutropenia [Unknown]
  - Pulmonary fibrosis [Unknown]
  - Respiratory failure [Recovered/Resolved]
  - Septic shock [Unknown]
  - Abdominal abscess [Unknown]
